FAERS Safety Report 5591918-5 (Version None)
Quarter: 2008Q1

REPORT INFORMATION
  Report Type: 
  Country: None (occurrence: None)
  Receive Date: 20080115
  Receipt Date: 20080104
  Transmission Date: 20080703
  Serious: Yes (Hospitalization, Other)
  Sender: FDA-Public Use
  Company Number: BR-ELI_LILLY_AND_COMPANY-BR200712003814

PATIENT
  Sex: Female
  Weight: 55 kg

DRUGS (8)
  1. FORTEO [Suspect]
     Indication: OSTEOPOROSIS
     Dosage: 20 UG, DAILY (1/D)
     Route: 058
     Dates: start: 20070501
  2. VASOPRIL /BRA/ [Concomitant]
     Indication: HYPERTENSION
     Dosage: 10 MG, 2/D
     Route: 048
  3. ANCORON [Concomitant]
     Indication: ARRHYTHMIA
     Dosage: 200 MG, EACH MORNING
     Route: 048
  4. PLAVIX [Concomitant]
     Indication: POOR PERIPHERAL CIRCULATION
     Dosage: 75 MG, DAILY (1/D)
     Route: 048
  5. VASOCARD [Concomitant]
     Indication: HYPERTENSION
     Dosage: 50 MG, 2/D
     Route: 048
  6. SIMVASTATIN [Concomitant]
     Indication: HYPERCHOLESTEROLAEMIA
     Dosage: 20 MG, DAILY (1/D)
     Route: 048
  7. OMEPRAZOLE [Concomitant]
     Indication: PROPHYLAXIS
     Dosage: UNK, EACH MORNING
     Route: 048
  8. METAMUCIL [Concomitant]
     Indication: CONSTIPATION
     Dosage: UNK, 2/D
     Route: 048

REACTIONS (1)
  - ARRHYTHMIA [None]
